FAERS Safety Report 5303310-9 (Version None)
Quarter: 2007Q2

REPORT INFORMATION
  Report Type: 
  Country: None (occurrence: None)
  Receive Date: 20070420
  Receipt Date: 20070416
  Transmission Date: 20071010
  Serious: Yes (Life-Threatening)
  Sender: FDA-Public Use
  Company Number: JP-GLAXOSMITHKLINE-B0466357A

PATIENT
  Age: 14 Year
  Sex: Female
  Weight: 39.5 kg

DRUGS (20)
  1. ALKERAN [Suspect]
     Indication: ALLOGENIC BONE MARROW TRANSPLANTATION THERAPY
     Dosage: 70MG PER DAY
     Route: 042
     Dates: start: 20050514, end: 20050516
  2. MEROPEN [Suspect]
     Dosage: 1000MG PER DAY
     Route: 042
     Dates: start: 20050430, end: 20050601
  3. UNASYN [Suspect]
     Dosage: 2250MG PER DAY
     Route: 042
     Dates: start: 20050430, end: 20050607
  4. MAXIPIME [Suspect]
     Dosage: 2G PER DAY
     Route: 042
     Dates: start: 20050525, end: 20050527
  5. PANSPORIN [Suspect]
     Dosage: 2G PER DAY
     Dates: start: 20050523, end: 20050525
  6. FUNGUARD [Suspect]
     Route: 042
     Dates: start: 20050603, end: 20050722
  7. GRAN [Concomitant]
     Dates: start: 20050523, end: 20050702
  8. CYCLOSPORINE [Concomitant]
     Indication: IMMUNOSUPPRESSANT DRUG THERAPY
     Dosage: 120MG PER DAY
     Route: 065
     Dates: start: 20050517, end: 20050525
  9. DIFLUCAN [Concomitant]
     Dosage: 200MG PER DAY
     Route: 042
     Dates: start: 20050430, end: 20050722
  10. UNKNOWN DRUG [Concomitant]
     Dosage: 40ML PER DAY
     Route: 042
     Dates: start: 20050511, end: 20050517
  11. UNKNOWN DRUG [Concomitant]
     Dosage: 1000IU PER DAY
     Route: 042
     Dates: start: 20050511, end: 20050517
  12. FUROSEMIDE [Concomitant]
     Dosage: 60MG PER DAY
     Dates: start: 20050511, end: 20050515
  13. VICCLOX [Concomitant]
     Dosage: 750MG PER DAY
     Route: 042
     Dates: start: 20050510, end: 20050722
  14. UNKNOWN DRUG [Concomitant]
     Dosage: 20MG PER DAY
     Dates: start: 20050513, end: 20050722
  15. SOLDACTONE [Concomitant]
     Dosage: 100MG PER DAY
     Route: 042
     Dates: start: 20050605, end: 20050615
  16. PREDONINE [Concomitant]
     Dosage: 70MG PER DAY
     Dates: start: 20050604, end: 20050606
  17. UNKNOWN DRUG [Concomitant]
     Dosage: 300MG PER DAY
     Route: 042
     Dates: start: 20050605, end: 20050618
  18. SOLU-MEDROL [Concomitant]
     Dosage: 1G PER DAY
     Route: 042
     Dates: start: 20050605, end: 20050607
  19. BAKTAR [Concomitant]
     Dosage: 4TAB PER DAY
     Route: 048
     Dates: start: 20050504, end: 20050516
  20. POLYMYXIN B SULFATE [Concomitant]
     Route: 048
     Dates: start: 20050514, end: 20050722

REACTIONS (3)
  - CYTOMEGALOVIRUS ANTIBODY POSITIVE [None]
  - HEPATIC FUNCTION ABNORMAL [None]
  - PNEUMONIA [None]
